FAERS Safety Report 18244263 (Version 1)
Quarter: 2020Q3

REPORT INFORMATION
  Report Type: Report from Study
  Country: US (occurrence: US)
  Receive Date: 20200909
  Receipt Date: 20200909
  Transmission Date: 20201103
  Serious: Yes (Other)
  Sender: FDA-Public Use
  Company Number: US-BIOGEN-2020BI00838058

PATIENT
  Age: 29 Year
  Sex: Male

DRUGS (3)
  1. TECFIDERA [Suspect]
     Active Substance: DIMETHYL FUMARATE
     Dosage: X 23 DAYS AFTER 120 MG DOSE
     Route: 048
     Dates: start: 20200205
  2. TECFIDERA [Suspect]
     Active Substance: DIMETHYL FUMARATE
     Dosage: FOR 7 DAYS
     Route: 048
     Dates: start: 20200206
  3. TECFIDERA [Suspect]
     Active Substance: DIMETHYL FUMARATE
     Indication: MULTIPLE SCLEROSIS
     Dosage: X 7 DAYS
     Route: 048
     Dates: start: 20200207

REACTIONS (9)
  - Confusional state [Unknown]
  - Pain [Unknown]
  - Feeling abnormal [Not Recovered/Not Resolved]
  - Peroneal nerve palsy [Not Recovered/Not Resolved]
  - Multiple sclerosis [Not Recovered/Not Resolved]
  - Weight decreased [Unknown]
  - Suicidal ideation [Recovered/Resolved]
  - Dizziness [Unknown]
  - Irritability [Not Recovered/Not Resolved]

NARRATIVE: CASE EVENT DATE: 202002
